FAERS Safety Report 9745133 (Version 2)
Quarter: 2013Q4

REPORT INFORMATION
  Report Type: Report from Study
  Country: MX (occurrence: MX)
  Receive Date: 20131211
  Receipt Date: 20131211
  Transmission Date: 20140711
  Serious: Yes (Other)
  Sender: FDA-Public Use
  Company Number: MX-ROCHE-1214755

PATIENT
  Age: 61 Year
  Sex: Female
  Weight: 70 kg

DRUGS (2)
  1. HERCEPTIN [Suspect]
     Indication: BREAST CANCER
     Route: 042
     Dates: start: 201207, end: 20130709
  2. ENALAPRIL [Suspect]
     Indication: HYPERTENSION
     Route: 048
     Dates: start: 2009, end: 201310

REACTIONS (4)
  - Hypertension [Recovering/Resolving]
  - Cardiac disorder [Recovered/Resolved]
  - Pericardial effusion [Recovered/Resolved]
  - Cardiac hypertrophy [Recovering/Resolving]
